FAERS Safety Report 6741151-6 (Version None)
Quarter: 2010Q2

REPORT INFORMATION
  Report Type: 
  Country: None (occurrence: None)
  Receive Date: 20100526
  Receipt Date: 20100517
  Transmission Date: 20101027
  Serious: Yes (Death)
  Sender: FDA-Public Use
  Company Number: US-ASTRAZENECA-2008UW18529

PATIENT
  Sex: Female

DRUGS (6)
  1. SEROQUEL [Suspect]
     Dosage: 25-50 MG QHS PRN, 25 MG IN AM AND 50 MG QPM
     Route: 048
     Dates: start: 20050126, end: 20061128
  2. ASPIRIN [Concomitant]
     Dates: start: 20061128
  3. MEGACE [Concomitant]
     Dates: start: 20061128
  4. NAMENDA [Concomitant]
     Dates: start: 20061128
  5. NORVASC [Concomitant]
     Dates: start: 20061128
  6. REMINYL [Concomitant]
     Dates: start: 20050126

REACTIONS (2)
  - DEATH [None]
  - DIABETES MELLITUS [None]
